FAERS Safety Report 8550959-6 (Version None)
Quarter: 2012Q3

REPORT INFORMATION
  Report Type: 
  Country: None (occurrence: None)
  Receive Date: 20120730
  Receipt Date: 20110721
  Transmission Date: 20120928
  Serious: No
  Sender: FDA-Public Use
  Company Number: US-ALLERGAN-1109906US

PATIENT
  Sex: Female

DRUGS (1)
  1. LATISSE [Suspect]
     Indication: GROWTH OF EYELASHES
     Dosage: 1 GTT, QOD
     Route: 061
     Dates: start: 20110301, end: 20110701

REACTIONS (3)
  - EYELID EXFOLIATION [None]
  - EYELIDS PRURITUS [None]
  - ERYTHEMA OF EYELID [None]
